FAERS Safety Report 9969940 (Version 1)
Quarter: 2014Q1

REPORT INFORMATION
  Report Type: Spontaneous
  Country: US (occurrence: None)
  Receive Date: 20140131
  Receipt Date: 20140131
  Transmission Date: 20141002
  Serious: Yes (Other)
  Sender: FDA-Public Use
  Company Number: 077724

PATIENT
  Sex: Female

DRUGS (2)
  1. KEPPRA [Suspect]
     Dates: start: 2002
  2. LEVETIRACETAM [Concomitant]

REACTIONS (3)
  - Petit mal epilepsy [None]
  - Alopecia [None]
  - Aphasia [None]
